FAERS Safety Report 25404038 (Version 1)
Quarter: 2025Q2

REPORT INFORMATION
  Report Type: Spontaneous
  Country: IL (occurrence: IL)
  Receive Date: 20250606
  Receipt Date: 20250606
  Transmission Date: 20250716
  Serious: Yes (Life-Threatening, Other)
  Sender: ARGENX BVBA
  Company Number: IL-ARGENX-2025-ARGX-IL007364

PATIENT

DRUGS (1)
  1. VYVGART [Suspect]
     Active Substance: EFGARTIGIMOD ALFA-FCAB
     Indication: Myasthenia gravis
     Route: 065
     Dates: start: 20241107, end: 20250317

REACTIONS (1)
  - Diffuse large B-cell lymphoma [Recovering/Resolving]

NARRATIVE: CASE EVENT DATE: 20250411
